FAERS Safety Report 10057630 (Version 1)
Quarter: 2014Q2

REPORT INFORMATION
  Report Type: Spontaneous
  Country: US (occurrence: US)
  Receive Date: 20140404
  Receipt Date: 20140404
  Transmission Date: 20141212
  Serious: Yes (Other)
  Sender: FDA-Public Use
  Company Number: US-BIOGENIDEC-2014BI030457

PATIENT
  Age: 39 Year
  Sex: Female
  Weight: 113 kg

DRUGS (21)
  1. AVONEX [Suspect]
     Indication: MULTIPLE SCLEROSIS
     Route: 030
     Dates: start: 20031219
  2. LEVAQUIN [Concomitant]
  3. DILAUDID [Concomitant]
     Route: 048
  4. MILK THISTLE [Concomitant]
     Route: 048
  5. ADVAIR DISKUS AEPB [Concomitant]
  6. SPIRIVA HANDIHALER [Concomitant]
  7. DEXILANT [Concomitant]
  8. AMITRIPTYLINE HCL [Concomitant]
  9. FLUOXETINE HCL [Concomitant]
  10. DICYCLOMINE HCL [Concomitant]
     Route: 048
  11. METRONIDAZOLE [Concomitant]
     Route: 048
  12. CEPHALEXIN [Concomitant]
     Route: 048
  13. ALPRAZOLAM [Concomitant]
     Route: 048
  14. TIZANIDINE HCL [Concomitant]
  15. PHENAZOPYRIDINE HCL [Concomitant]
  16. ACYCLOVIR [Concomitant]
     Route: 048
  17. FLUCONAZOLE [Concomitant]
  18. CHERATUSSIN [Concomitant]
  19. DOCUSATE SODIUM [Concomitant]
     Route: 048
  20. NEURONTIN [Concomitant]
     Route: 048
  21. PROVIGIL [Concomitant]
     Indication: SOMNOLENCE
     Route: 048

REACTIONS (7)
  - Gallbladder disorder [Unknown]
  - Foot operation [Unknown]
  - Hysterectomy [Unknown]
  - Somnolence [Unknown]
  - Anxiety [Unknown]
  - Depression [Unknown]
  - Hepatic enzyme increased [Unknown]
